FAERS Safety Report 8151910 (Version 3)
Quarter: 2013Q1

REPORT INFORMATION
  Report Type: Spontaneous
  Country: US (occurrence: US)
  Receive Date: 20110922
  Receipt Date: 20130215
  Transmission Date: 20140127
  Serious: Yes (Other)
  Sender: FDA-Public Use
  Company Number: US-ASTRAZENECA-2011SE12708

PATIENT
  Age: 706 Month
  Sex: Female
  Weight: 113.4 kg

DRUGS (22)
  1. SEROQUEL [Suspect]
     Route: 048
     Dates: start: 20071205, end: 20080110
  2. SEROQUEL [Suspect]
     Route: 048
     Dates: start: 20080515, end: 20080515
  3. PERCOCET [Concomitant]
     Indication: PAIN
     Dosage: 5 TO 325 MG ORAL TABLET TAKE 1 TAB BY MOUTH EVERY SIX HOURS AS NEEDED
     Route: 048
     Dates: start: 201208
  4. PRINIVIL [Concomitant]
     Route: 048
     Dates: start: 201208
  5. MAG OX [Concomitant]
     Indication: HEADACHE
     Route: 048
     Dates: start: 201208
  6. IMITREX [Concomitant]
     Route: 048
     Dates: start: 201208
  7. PRILOSEC [Concomitant]
     Dosage: 20 TO 40 MG DAILY
     Route: 048
     Dates: start: 20071226, end: 20091019
  8. SENNA LAX [Concomitant]
     Indication: CONSTIPATION
     Route: 048
     Dates: start: 201208
  9. DOC Q LACE [Concomitant]
     Route: 048
     Dates: start: 201208
  10. ASA EC [Concomitant]
     Route: 048
     Dates: start: 201208
  11. ZOCOR [Concomitant]
     Route: 048
     Dates: start: 201208
  12. PAXIL [Concomitant]
     Route: 048
     Dates: start: 201208
  13. VITAMIN D [Concomitant]
     Dosage: 1000 UNIT TAKE 1 CAP BY MOUTH TWICE DAILY
     Route: 048
     Dates: start: 201208
  14. NEURONTIN [Concomitant]
     Route: 048
     Dates: start: 20080515, end: 20080516
  15. ALPRAZOLAM [Concomitant]
     Route: 048
     Dates: start: 20071120, end: 20071205
  16. FISH OIL ETHYL ESTERS [Concomitant]
     Route: 048
     Dates: start: 20080205, end: 20080626
  17. FUROSEMIDE [Concomitant]
     Indication: ADVERSE DRUG REACTION
     Route: 048
     Dates: start: 20080125, end: 20080324
  18. FLEXERIL [Concomitant]
     Indication: MUSCLE SPASMS
     Route: 048
     Dates: start: 20080110, end: 20081013
  19. NAPROXEN [Concomitant]
     Route: 048
     Dates: start: 20080110, end: 20080730
  20. TRAZADONE [Concomitant]
     Route: 048
     Dates: start: 20070921, end: 20070921
  21. TRAZADONE [Concomitant]
     Route: 048
     Dates: start: 20070921, end: 20071205
  22. PREDNISONE [Concomitant]
     Dosage: THREE TIMES A DAY FOR 5 DAYS,2 TIMES A DAY FOR 5 DAYS,40 MG DAILY
     Route: 048
     Dates: start: 20071113, end: 20071125

REACTIONS (3)
  - Pancreatitis [Unknown]
  - Diabetic coma [Unknown]
  - Type 2 diabetes mellitus [Unknown]
